FAERS Safety Report 25921643 (Version 3)
Quarter: 2025Q4

REPORT INFORMATION
  Report Type: Spontaneous
  Country: JP (occurrence: JP)
  Receive Date: 20251014
  Receipt Date: 20251112
  Transmission Date: 20260117
  Serious: Yes (Death, Other)
  Sender: TAKEDA
  Company Number: JP-TAKEDA-2025TJP010358

PATIENT
  Age: 8 Decade
  Sex: Male

DRUGS (3)
  1. FRUZAQLA [Suspect]
     Active Substance: FRUQUINTINIB
     Indication: Colon cancer
     Dosage: 5 MILLIGRAM, QD
     Dates: start: 20250620, end: 20251010
  2. CLOPIDOGREL [Concomitant]
     Active Substance: CLOPIDOGREL BISULFATE
     Dosage: UNK
  3. CILOSTAZOL [Concomitant]
     Active Substance: CILOSTAZOL
     Dosage: UNK

REACTIONS (3)
  - Colon cancer [Fatal]
  - Renal failure [Fatal]
  - Dehydration [Fatal]

NARRATIVE: CASE EVENT DATE: 20250908
